FAERS Safety Report 10503090 (Version 1)
Quarter: 2014Q4

REPORT INFORMATION
  Report Type: Spontaneous
  Country: IN (occurrence: IN)
  Receive Date: 20141007
  Receipt Date: 20141007
  Transmission Date: 20150528
  Serious: Yes (Other)
  Sender: FDA-Public Use
  Company Number: IN-MYLANLABS-2014M1006408

PATIENT

DRUGS (6)
  1. HALOPERIDOL. [Suspect]
     Active Substance: HALOPERIDOL
     Dosage: 30MG TABLET
     Route: 050
  2. SODIUM VALPROATE [Concomitant]
     Active Substance: VALPROATE SODIUM
     Dosage: 1200MG TABLET
     Route: 050
  3. ZUCLOPENTHIXOL [Suspect]
     Active Substance: ZUCLOPENTHIXOL
     Dosage: 1ML DEEP IM INJECTION EVERY 2 WEEKS (200 MG/ML)
     Route: 030
  4. TRIHEXYPHENIDYL [Concomitant]
     Active Substance: TRIHEXYPHENIDYL
     Dosage: 2MG TABLET
     Route: 050
  5. VITAMIN B-COMPLEX WITH MINERALS [Concomitant]
     Route: 050
  6. CHLORPROMAZINE [Suspect]
     Active Substance: CHLORPROMAZINE
     Dosage: 600MG TABLET
     Route: 050

REACTIONS (4)
  - Mental retardation [Unknown]
  - Abnormal behaviour [Unknown]
  - Polydipsia psychogenic [None]
  - Hyponatraemia [Unknown]
